FAERS Safety Report 6878728-3 (Version None)
Quarter: 2010Q3

REPORT INFORMATION
  Report Type: 
  Country: None (occurrence: None)
  Receive Date: 20100728
  Receipt Date: 20100720
  Transmission Date: 20110219
  Serious: Yes (Hospitalization, Other)
  Sender: FDA-Public Use
  Company Number: US-SANOFI-AVENTIS-2010SA037045

PATIENT
  Age: 79 Year
  Sex: Male
  Weight: 64.4 kg

DRUGS (5)
  1. LANTUS [Suspect]
     Indication: TYPE 2 DIABETES MELLITUS
     Dosage: DOSE:5 UNIT(S)
     Route: 058
  2. ASPIRIN [Concomitant]
  3. COLACE [Concomitant]
     Indication: CONSTIPATION
  4. METOPROLOL [Concomitant]
     Indication: HYPERTENSION
     Dates: start: 20100630
  5. DEXTROSE [Concomitant]
     Dosage: 4GM, 1-3 TABLETS AS NEEDED FOR LOW BLOOD SUGAR

REACTIONS (6)
  - DEHYDRATION [None]
  - DIZZINESS [None]
  - HYPOGLYCAEMIA [None]
  - LOSS OF CONSCIOUSNESS [None]
  - MALNUTRITION [None]
  - OVERDOSE [None]
